FAERS Safety Report 10014736 (Version 1)
Quarter: 2014Q1

REPORT INFORMATION
  Report Type: Spontaneous
  Country: US (occurrence: US)
  Receive Date: 20140317
  Receipt Date: 20140317
  Transmission Date: 20141002
  Serious: No
  Sender: FDA-Public Use
  Company Number: US-MALLINCKRODT-T201304449

PATIENT
  Sex: Female

DRUGS (1)
  1. TOFRANIL PM [Suspect]
     Indication: ANTIDEPRESSANT THERAPY
     Dosage: UNK
     Dates: start: 2013

REACTIONS (1)
  - Solar lentigo [Unknown]
